FAERS Safety Report 7465834-8 (Version None)
Quarter: 2011Q2

REPORT INFORMATION
  Report Type: 
  Country: None (occurrence: None)
  Receive Date: 20110509
  Receipt Date: 20100408
  Transmission Date: 20111010
  Serious: No
  Sender: FDA-Public Use
  Company Number: US-ALEXION-A201000372

PATIENT
  Sex: Female

DRUGS (5)
  1. CYMBALTA [Concomitant]
     Dosage: UNK
     Route: 048
  2. SOLIRIS [Suspect]
     Indication: PAROXYSMAL NOCTURNAL HAEMOGLOBINURIA
     Dosage: 600 MG, QWK
     Route: 042
     Dates: start: 20090217
  3. FOLIC ACID [Concomitant]
     Dosage: UNK
     Route: 048
  4. SOLIRIS [Suspect]
     Dosage: UNK
     Route: 042
  5. ZOLOFT [Concomitant]
     Dosage: UNK
     Route: 048

REACTIONS (1)
  - HAEMORRHOIDS [None]
